FAERS Safety Report 9319698 (Version 1)
Quarter: 2013Q2

REPORT INFORMATION
  Report Type: Spontaneous
  Country: US (occurrence: None)
  Receive Date: 20130529
  Receipt Date: 20130529
  Transmission Date: 20140414
  Serious: No
  Sender: FDA-Public Use
  Company Number: None

PATIENT
  Age: 69 Year
  Sex: Male

DRUGS (7)
  1. ZYTIGA 250 MG JANSSEN BIOTECH [Suspect]
     Indication: PROSTATE CANCER
     Route: 048
  2. RAPAFLO [Concomitant]
  3. KETOCONAZOLE [Concomitant]
  4. LORAZEPAM [Concomitant]
  5. LOSARTAN [Concomitant]
  6. CITALOPRAM [Concomitant]
  7. ATORVASTATIN [Concomitant]

REACTIONS (1)
  - Herpes zoster [None]
